FAERS Safety Report 12725425 (Version 3)
Quarter: 2016Q4

REPORT INFORMATION
  Report Type: Spontaneous
  Country: JP (occurrence: JP)
  Receive Date: 20160908
  Receipt Date: 20161213
  Transmission Date: 20170207
  Serious: No
  Sender: FDA-Public Use
  Company Number: JP-PFIZER INC-2016416626

PATIENT
  Sex: Female
  Weight: 2.15 kg

DRUGS (14)
  1. CLOPIDOGREL [Suspect]
     Active Substance: CLOPIDOGREL BISULFATE
     Indication: BASILAR ARTERY STENOSIS
     Dosage: 75 MG, 1X/DAY
     Route: 064
  2. RITODRINE HYDROCHLORIDE [Suspect]
     Active Substance: RITODRINE HYDROCHLORIDE
     Indication: PREMATURE DELIVERY
     Dosage: UNK
     Route: 064
  3. ARGATROBAN. [Suspect]
     Active Substance: ARGATROBAN
     Indication: BASILAR ARTERY STENOSIS
     Dosage: UNK
     Route: 064
  4. MAGNESIUM SULFATE. [Suspect]
     Active Substance: MAGNESIUM SULFATE
     Dosage: 0.8 G,1 HR
     Route: 064
  5. ARGATROBAN. [Suspect]
     Active Substance: ARGATROBAN
     Indication: BRAIN STEM INFARCTION
  6. ASPIRIN /00002701/ [Suspect]
     Active Substance: ASPIRIN
     Indication: BASILAR ARTERY STENOSIS
     Dosage: 100 MG, 1X/DAY
     Route: 064
  7. ASPIRIN /00002701/ [Suspect]
     Active Substance: ASPIRIN
     Indication: CEREBELLAR INFARCTION
  8. HYDROCORTISONE. [Suspect]
     Active Substance: HYDROCORTISONE
     Indication: STEVENS-JOHNSON SYNDROME
     Dosage: 600 MG, 1X/DAY
     Route: 064
  9. HEPARIN [Suspect]
     Active Substance: HEPARIN SODIUM
     Indication: BASILAR ARTERY STENOSIS
     Dosage: 10000 IU, DAILY
     Route: 064
  10. MAGNESIUM SULFATE. [Suspect]
     Active Substance: MAGNESIUM SULFATE
     Dosage: 1.6 G, 1 HR
     Route: 064
  11. CLOPIDOGREL [Suspect]
     Active Substance: CLOPIDOGREL BISULFATE
     Indication: BRAIN STEM INFARCTION
  12. RITODRINE HYDROCHLORIDE [Suspect]
     Active Substance: RITODRINE HYDROCHLORIDE
     Dosage: 133 UG, 1 MIN (VOLUME OF RITODRINE WAS INCREASED)
     Route: 064
  13. RITODRINE HYDROCHLORIDE [Suspect]
     Active Substance: RITODRINE HYDROCHLORIDE
     Dosage: 83 UG, 1 MIN
     Route: 064
  14. HEPARIN [Suspect]
     Active Substance: HEPARIN SODIUM
     Indication: BRAIN STEM INFARCTION

REACTIONS (1)
  - Maternal exposure during pregnancy [Unknown]
